FAERS Safety Report 13790177 (Version 1)
Quarter: 2017Q3

REPORT INFORMATION
  Report Type: Spontaneous
  Country: CH (occurrence: CH)
  Receive Date: 20170725
  Receipt Date: 20170725
  Transmission Date: 20171127
  Serious: Yes (Hospitalization)
  Sender: FDA-Public Use
  Company Number: CH-BAXTER-2017BAX028435

PATIENT
  Age: 28 Year
  Sex: Male
  Weight: 80.3 kg

DRUGS (12)
  1. HOLOXAN 2 G [Suspect]
     Active Substance: IFOSFAMIDE
     Indication: CHEMOTHERAPY
     Dosage: FIRST CYCLE, ON THE FIRST DAY
     Route: 042
     Dates: start: 20170120, end: 20170120
  2. HOLOXAN 2 G [Suspect]
     Active Substance: IFOSFAMIDE
     Dosage: FIRST CYCLE, ON THE SECOND DAY
     Route: 042
     Dates: start: 20170121, end: 20170121
  3. VINCRISTINE [Suspect]
     Active Substance: VINCRISTINE
     Indication: CHEMOTHERAPY
     Dosage: FIRST CYCLE, ON THE FIRST DAY
     Route: 042
     Dates: start: 20170120, end: 20170120
  4. CIPROXIN [Suspect]
     Active Substance: CIPROFLOXACIN
     Indication: CHILLS
  5. UROMITEXAN 400 ML, L?SUNG ZUR INTRAVEN?SEN ANWENDUNG [Suspect]
     Active Substance: MESNA
     Indication: PRODUCT USED FOR UNKNOWN INDICATION
     Dosage: FIRST CYCLE, ON THE FIRST DAY
     Route: 065
     Dates: start: 20170120, end: 20170120
  6. VINCRISTINE [Suspect]
     Active Substance: VINCRISTINE
     Route: 042
     Dates: start: 20170202, end: 20170202
  7. ACTINOMYCIN D [Suspect]
     Active Substance: DACTINOMYCIN
     Indication: CHEMOTHERAPY
     Dosage: FIRST CYCLE, ON THE FIRST DAY
     Route: 042
     Dates: start: 20170120, end: 20170120
  8. CO-AMOXI-MEPHA LACTAB [Suspect]
     Active Substance: AMOXICILLIN\CLAVULANIC ACID
     Indication: CHILLS
  9. UROMITEXAN 400 ML, L?SUNG ZUR INTRAVEN?SEN ANWENDUNG [Suspect]
     Active Substance: MESNA
     Dosage: FIRST CYCLE, ON THE SECOND DAY
     Route: 065
     Dates: start: 20170121, end: 20170121
  10. CIPROXIN [Suspect]
     Active Substance: CIPROFLOXACIN
     Indication: PYREXIA
     Dosage: VARNISH TABLETS
     Route: 048
     Dates: start: 20170203
  11. CO-AMOXI-MEPHA LACTAB [Suspect]
     Active Substance: AMOXICILLIN\CLAVULANIC ACID
     Indication: PYREXIA
     Route: 048
     Dates: start: 20170203
  12. VINCRISTINE [Suspect]
     Active Substance: VINCRISTINE
     Route: 042
     Dates: start: 20170126, end: 20170126

REACTIONS (4)
  - Pyrexia [Recovered/Resolved]
  - Chills [Recovered/Resolved]
  - Agranulocytosis [Recovered/Resolved]
  - Dizziness [Unknown]

NARRATIVE: CASE EVENT DATE: 20170203
